FAERS Safety Report 19662089 (Version 1)
Quarter: 2021Q3

REPORT INFORMATION
  Report Type: Report from Study
  Country: HK (occurrence: HK)
  Receive Date: 20210805
  Receipt Date: 20210805
  Transmission Date: 20211014
  Serious: Yes (Other)
  Sender: FDA-Public Use
  Company Number: HK-TEVA-2021-HK-1938211

PATIENT
  Age: 23 Year
  Sex: Male

DRUGS (5)
  1. SIBUTRAMINE [Suspect]
     Active Substance: SIBUTRAMINE
     Indication: DRUG THERAPY
     Route: 065
  2. CHLORPHENIRAMINE. [Suspect]
     Active Substance: CHLORPHENIRAMINE
     Indication: DRUG THERAPY
     Route: 065
  3. FUROSEMIDE. [Suspect]
     Active Substance: FUROSEMIDE
     Indication: WEIGHT DECREASED
     Route: 065
  4. FLUOXETINE [Suspect]
     Active Substance: FLUOXETINE HYDROCHLORIDE
     Indication: DRUG THERAPY
     Route: 065
  5. BISACODYL. [Suspect]
     Active Substance: BISACODYL
     Indication: DRUG THERAPY
     Route: 065

REACTIONS (10)
  - Toxicity to various agents [Unknown]
  - Off label use [Unknown]
  - Chest discomfort [Unknown]
  - Hyperhidrosis [Unknown]
  - Tetany [Unknown]
  - Intentional product misuse [Unknown]
  - Hypokalaemia [Unknown]
  - Urine output increased [Unknown]
  - Dizziness [Unknown]
  - Decreased appetite [Unknown]
